FAERS Safety Report 18109774 (Version 1)
Quarter: 2020Q3

REPORT INFORMATION
  Report Type: Spontaneous
  Country: US (occurrence: US)
  Receive Date: 20200804
  Receipt Date: 20200804
  Transmission Date: 20201103
  Serious: Yes (Other)
  Sender: FDA-Public Use
  Company Number: US-PURDUE-USA-2020-0160074

PATIENT
  Age: 60 Year
  Sex: Female

DRUGS (27)
  1. PERCOCET                           /00446701/ [Suspect]
     Active Substance: ACETAMINOPHEN\OXYCODONE HYDROCHLORIDE\OXYCODONE TEREPHTHALATE
     Indication: FIBROMYALGIA
     Dosage: 330 MG, TID
     Route: 048
     Dates: start: 201710
  2. LIDODERM [Concomitant]
     Active Substance: LIDOCAINE
     Indication: PRODUCT USED FOR UNKNOWN INDICATION
     Dosage: 1 PATCH, Q12H
     Route: 062
  3. SEROQUEL [Concomitant]
     Active Substance: QUETIAPINE FUMARATE
     Indication: PRODUCT USED FOR UNKNOWN INDICATION
     Dosage: 25 MG, HS
     Route: 048
  4. LYRICA [Suspect]
     Active Substance: PREGABALIN
     Indication: PAIN
  5. ZOLPIDEM TARTRATE. [Suspect]
     Active Substance: ZOLPIDEM TARTRATE
     Indication: PRODUCT USED FOR UNKNOWN INDICATION
     Dosage: 10 MG, DAILY
     Route: 048
  6. OXYCONTIN [Suspect]
     Active Substance: OXYCODONE HYDROCHLORIDE
     Indication: FIBROMYALGIA
     Dosage: 30 MG, TID
     Route: 048
     Dates: start: 20071220, end: 20080831
  7. ZYPREXA [Suspect]
     Active Substance: OLANZAPINE
     Indication: DEPRESSION
     Dosage: 5 MG, DAILY
     Route: 048
     Dates: start: 20060912
  8. OXYCONTIN [Suspect]
     Active Substance: OXYCODONE HYDROCHLORIDE
     Indication: PAIN
     Dosage: 40 MG, TID
     Route: 048
     Dates: start: 20030926, end: 201705
  9. LYRICA [Suspect]
     Active Substance: PREGABALIN
     Indication: ANXIETY
     Dosage: 150 MG, TID
     Route: 048
  10. TRAMADOL. [Suspect]
     Active Substance: TRAMADOL
     Indication: PAIN
     Dosage: 50 MG, QID
     Route: 048
     Dates: start: 2018
  11. XANAX [Suspect]
     Active Substance: ALPRAZOLAM
     Indication: PRODUCT USED FOR UNKNOWN INDICATION
     Dosage: 1 MG, QID
     Route: 048
  12. MELOXICAM. [Concomitant]
     Active Substance: MELOXICAM
     Indication: PRODUCT USED FOR UNKNOWN INDICATION
     Dosage: 800 MG, BID
     Route: 048
  13. NEXIUM [Suspect]
     Active Substance: ESOMEPRAZOLE MAGNESIUM
     Indication: PRODUCT USED FOR UNKNOWN INDICATION
     Dosage: 40 MG, DAILY
     Route: 048
  14. TRAZODONE [Concomitant]
     Active Substance: TRAZODONE HYDROCHLORIDE
     Indication: PAIN
  15. PREMPRO [Concomitant]
     Active Substance: ESTROGENS, CONJUGATED\MEDROXYPROGESTERONE ACETATE
     Indication: PRODUCT USED FOR UNKNOWN INDICATION
     Dosage: 1.5 MG, DAILY
     Route: 065
  16. OXYCONTIN [Suspect]
     Active Substance: OXYCODONE HYDROCHLORIDE
     Dosage: 15 MG, BID
     Route: 065
     Dates: start: 201706, end: 201710
  17. NALTREXONE [Suspect]
     Active Substance: NALTREXONE
     Indication: PRODUCT USED FOR UNKNOWN INDICATION
     Dosage: 4.5 MG, DAILY
     Route: 048
  18. CITALOPRAM [Suspect]
     Active Substance: CITALOPRAM HYDROBROMIDE
     Indication: PRODUCT USED FOR UNKNOWN INDICATION
     Dosage: 20 MG, HS
     Route: 048
  19. METAXALONE. [Suspect]
     Active Substance: METAXALONE
     Indication: PRODUCT USED FOR UNKNOWN INDICATION
     Dosage: 800 MG, Q12H
     Route: 048
  20. AMBIEN [Concomitant]
     Active Substance: ZOLPIDEM TARTRATE
     Indication: PRODUCT USED FOR UNKNOWN INDICATION
     Dosage: 10 MG, PRN
     Dates: start: 20100413, end: 20100515
  21. METHOTREXATE. [Suspect]
     Active Substance: METHOTREXATE
     Indication: RHEUMATOID ARTHRITIS
     Dosage: 2.5 MG, WEEKLY
     Route: 048
  22. PROZAC [Concomitant]
     Active Substance: FLUOXETINE HYDROCHLORIDE
     Indication: PRODUCT USED FOR UNKNOWN INDICATION
     Dosage: 20 MG, TID
     Route: 048
     Dates: start: 2006, end: 2006
  23. RITALIN [Concomitant]
     Active Substance: METHYLPHENIDATE HYDROCHLORIDE
     Indication: PRODUCT USED FOR UNKNOWN INDICATION
     Dosage: 20 MG, TID
     Route: 048
     Dates: start: 2006, end: 2006
  24. OXYCONTIN [Suspect]
     Active Substance: OXYCODONE HYDROCHLORIDE
     Dosage: 15 MG, TID
     Route: 048
     Dates: start: 201705, end: 201706
  25. SAVELLA [Suspect]
     Active Substance: MILNACIPRAN HYDROCHLORIDE
     Indication: PRODUCT USED FOR UNKNOWN INDICATION
     Dosage: 50 MG, BID
     Route: 048
  26. GABAPENTIN. [Concomitant]
     Active Substance: GABAPENTIN
     Indication: PRODUCT USED FOR UNKNOWN INDICATION
     Dosage: 600 MG, DAILY
     Route: 048
  27. CEFDINIR. [Concomitant]
     Active Substance: CEFDINIR
     Indication: PRODUCT USED FOR UNKNOWN INDICATION
     Dosage: 300 MG, BID
     Route: 048

REACTIONS (78)
  - Laryngeal erythema [Unknown]
  - Dysphonia [Unknown]
  - Diverticulum [Unknown]
  - Type V hyperlipidaemia [Unknown]
  - Mental disorder [Unknown]
  - Rectal haemorrhage [Unknown]
  - Anxiety [Unknown]
  - Abdominal pain [Unknown]
  - Back pain [Unknown]
  - Chest pain [Unknown]
  - Pustular psoriasis [Unknown]
  - Hepatic steatosis [Unknown]
  - Fatigue [Unknown]
  - Anxiety disorder [Unknown]
  - Arthralgia [Unknown]
  - Cough [Unknown]
  - Hiatus hernia [Unknown]
  - Rheumatoid arthritis [Not Recovered/Not Resolved]
  - Lower respiratory tract infection [Recovered/Resolved]
  - Atelectasis [Recovered/Resolved]
  - Leukoplakia [Unknown]
  - Rhinitis allergic [Unknown]
  - Thyroid mass [Unknown]
  - Myositis [Unknown]
  - Alanine aminotransferase increased [Unknown]
  - Essential hypertension [Unknown]
  - Hypercholesterolaemia [Unknown]
  - Hyperhidrosis [Unknown]
  - Posterior tibial nerve injury [Unknown]
  - Tinea pedis [Unknown]
  - Gastrooesophageal reflux disease [Unknown]
  - Hepatic cirrhosis [Unknown]
  - Type 2 diabetes mellitus [Not Recovered/Not Resolved]
  - Impaired work ability [Not Recovered/Not Resolved]
  - Unevaluable event [Unknown]
  - Bronchitis [Unknown]
  - Irritable bowel syndrome [Unknown]
  - Peripheral venous disease [Unknown]
  - Obesity [Unknown]
  - Carbon dioxide increased [Unknown]
  - Osteoarthritis [Unknown]
  - Drug dependence [Unknown]
  - Acute sinusitis [Unknown]
  - Laryngitis [Unknown]
  - Feeling hot [Unknown]
  - Aspartate aminotransferase increased [Unknown]
  - Glycosylated haemoglobin increased [Unknown]
  - Gastrointestinal tract adenoma [Unknown]
  - Scoliosis [Unknown]
  - Peripheral sensory neuropathy [Unknown]
  - Dysuria [Unknown]
  - Diabetes mellitus inadequate control [Unknown]
  - Sialoadenitis [Unknown]
  - Loss of personal independence in daily activities [Not Recovered/Not Resolved]
  - Depression [Unknown]
  - Cystitis [Unknown]
  - Chronic sinusitis [Unknown]
  - Ear infection [Unknown]
  - Myalgia [Unknown]
  - Dyspnoea [Unknown]
  - Palpitations [Unknown]
  - Urinary incontinence [Unknown]
  - Pain in extremity [Unknown]
  - Gastroenteritis viral [Unknown]
  - Onychomycosis [Unknown]
  - Haemorrhoids [Unknown]
  - Muscle spasms [Unknown]
  - Infection [Unknown]
  - Influenza [Unknown]
  - Varicose vein [Unknown]
  - Osteoma [Unknown]
  - Dizziness [Unknown]
  - Large intestinal polypectomy [Unknown]
  - Spinal osteoarthritis [Unknown]
  - Soft tissue mass [Unknown]
  - Nasal congestion [Unknown]
  - Goitre [Unknown]
  - Chronic idiopathic pain syndrome [Unknown]

NARRATIVE: CASE EVENT DATE: 2004
